FAERS Safety Report 7803813-9 (Version None)
Quarter: 2011Q4

REPORT INFORMATION
  Report Type: 
  Country: None (occurrence: None)
  Receive Date: 20111010
  Receipt Date: 20111003
  Transmission Date: 20120403
  Serious: No
  Sender: FDA-Public Use
  Company Number: US-PFIZER INC-2011110528

PATIENT
  Sex: Female
  Weight: 76.19 kg

DRUGS (2)
  1. MECLIZINE [Suspect]
     Dosage: 25 MG, 3X/DAY
     Route: 048
     Dates: start: 20110501
  2. VALIUM [Concomitant]
     Indication: MALLORY-WEISS SYNDROME
     Dosage: 5 MG, 3X/DAY
     Route: 048

REACTIONS (1)
  - ABDOMINAL DISCOMFORT [None]
